FAERS Safety Report 19300500 (Version 8)
Quarter: 2022Q1

REPORT INFORMATION
  Report Type: Spontaneous
  Country: GB (occurrence: None)
  Receive Date: 20210525
  Receipt Date: 20220104
  Transmission Date: 20220423
  Serious: Yes (Other)
  Sender: FDA-Public Use
  Company Number: GB-BRISTOL-MYERS SQUIBB COMPANY-BMS-2020-080474

PATIENT
  Age: 43 Year
  Sex: Male
  Weight: 101 kg

DRUGS (14)
  1. CARBOPLATIN [Suspect]
     Active Substance: CARBOPLATIN
     Indication: Oesophageal squamous cell carcinoma
     Dosage: UNKNOWN
     Route: 041
     Dates: start: 201905, end: 201906
  2. LEUCOVORIN [Suspect]
     Active Substance: LEUCOVORIN
     Indication: Oesophageal squamous cell carcinoma
     Dosage: UNKNOWN
     Route: 041
     Dates: start: 202003, end: 202009
  3. CISPLATIN [Suspect]
     Active Substance: CISPLATIN
     Indication: Oesophageal squamous cell carcinoma
     Route: 065
     Dates: start: 201409, end: 201501
  4. CISPLATIN [Suspect]
     Active Substance: CISPLATIN
     Route: 065
     Dates: start: 20210217
  5. CISPLATIN [Suspect]
     Active Substance: CISPLATIN
     Route: 065
     Dates: start: 202003, end: 202009
  6. CISPLATIN [Suspect]
     Active Substance: CISPLATIN
     Dosage: UNKNOWN
     Route: 041
     Dates: start: 201905, end: 201906
  7. CISPLATIN [Suspect]
     Active Substance: CISPLATIN
     Route: 065
     Dates: start: 202003, end: 202003
  8. DOCETAXEL [Suspect]
     Active Substance: DOCETAXEL
     Indication: Oesophageal squamous cell carcinoma
     Dosage: UNKNOWN
     Route: 065
     Dates: start: 201409, end: 201501
  9. FLUOROURACIL [Suspect]
     Active Substance: FLUOROURACIL
     Indication: Oesophageal squamous cell carcinoma
     Dosage: UNKNOWN
     Route: 041
     Dates: start: 201409, end: 201501
  10. FLUOROURACIL [Suspect]
     Active Substance: FLUOROURACIL
     Indication: Chemotherapy
     Dosage: UNKNOWN
     Route: 041
     Dates: start: 202003, end: 202009
  11. FLUOROURACIL [Suspect]
     Active Substance: FLUOROURACIL
     Dates: start: 20210217
  12. OXALIPLATIN [Suspect]
     Active Substance: OXALIPLATIN
     Indication: Oesophageal squamous cell carcinoma
     Dosage: UNKNOWN
     Route: 041
     Dates: start: 202003, end: 202009
  13. OXALIPLATIN [Suspect]
     Active Substance: OXALIPLATIN
     Route: 065
     Dates: start: 20210217
  14. PACLITAXEL [Suspect]
     Active Substance: PACLITAXEL
     Indication: Oesophageal squamous cell carcinoma
     Dosage: UNKNOWN
     Route: 041
     Dates: start: 201905, end: 201906

REACTIONS (4)
  - Neuropathy peripheral [Not Recovered/Not Resolved]
  - Metastasis [Unknown]
  - Malignant neoplasm progression [Unknown]
  - Off label use [Unknown]

NARRATIVE: CASE EVENT DATE: 20200101
